FAERS Safety Report 14356212 (Version 3)
Quarter: 2020Q2

REPORT INFORMATION
  Report Type: Spontaneous
  Country: US (occurrence: US)
  Receive Date: 20180105
  Receipt Date: 20200623
  Transmission Date: 20200713
  Serious: No
  Sender: FDA-Public Use
  Company Number: US-ALLERGAN-1763124US

PATIENT
  Age: 46 Year
  Sex: Male
  Weight: 95.24 kg

DRUGS (3)
  1. KYBELLA [Suspect]
     Active Substance: DEOXYCHOLIC ACID
     Indication: FAT TISSUE INCREASED
     Dosage: 2 ML, SINGLE
     Route: 058
     Dates: start: 20170824, end: 20170824
  2. MINOXIDIL. [Concomitant]
     Active Substance: MINOXIDIL
     Indication: ANDROGENETIC ALOPECIA
     Dosage: 1 ML, BID
     Route: 061
     Dates: start: 201708
  3. ROGAINE [Concomitant]
     Active Substance: MINOXIDIL

REACTIONS (3)
  - Injection site swelling [Recovered/Resolved]
  - Facial asymmetry [Not Recovered/Not Resolved]
  - Pain in jaw [Not Recovered/Not Resolved]

NARRATIVE: CASE EVENT DATE: 20170824
